FAERS Safety Report 21881094 (Version 1)
Quarter: 2023Q1

REPORT INFORMATION
  Report Type: Spontaneous
  Country: PT (occurrence: PT)
  Receive Date: 20230118
  Receipt Date: 20230118
  Transmission Date: 20230417
  Serious: Yes (Other)
  Sender: FDA-Public Use
  Company Number: PT-PRINSTON PHARMACEUTICAL INC.-2023PRN00020

PATIENT
  Age: 66 Year
  Sex: Female

DRUGS (2)
  1. QUETIAPINE [Suspect]
     Active Substance: QUETIAPINE
     Dosage: 600 MG
     Route: 065
  2. ESCITALOPRAM [Concomitant]
     Active Substance: ESCITALOPRAM OXALATE
     Indication: Psychotic symptom
     Dosage: 20 MG
     Route: 065

REACTIONS (2)
  - Catatonia [Recovered/Resolved]
  - Urinary retention [Unknown]
